FAERS Safety Report 6908453-1 (Version None)
Quarter: 2010Q3

REPORT INFORMATION
  Report Type: 
  Country: None (occurrence: None)
  Receive Date: 20100803
  Receipt Date: 20100726
  Transmission Date: 20110219
  Serious: Yes (Death, Other)
  Sender: FDA-Public Use
  Company Number: 2010US002924

PATIENT
  Sex: Female

DRUGS (7)
  1. PROGRAF [Suspect]
     Indication: RENAL TRANSPLANT
     Dosage: 3 MG, BID; 3.5 MG, BID; 4 MG, BID
  2. PREDNISONE [Suspect]
     Indication: RENAL TRANSPLANT
     Dosage: 5 MG, UID/QD; 60 MG, UID/QD; 60 MG, UID/QD
  3. PREDNISONE [Suspect]
     Indication: SARCOIDOSIS
     Dosage: 5 MG, UID/QD; 60 MG, UID/QD; 60 MG, UID/QD
  4. PREDNISONE [Suspect]
     Indication: TRANSPLANT REJECTION
     Dosage: 5 MG, UID/QD; 60 MG, UID/QD; 60 MG, UID/QD
  5. MYCOPHENOLATE MOFETIL [Suspect]
     Indication: RENAL TRANSPLANT
     Dosage: 750 MG, BID
  6. INFLIXIMAB (INFLIXIMAB) [Suspect]
     Indication: SARCOIDOSIS
     Dosage: 3 MG/KG, TOTAL DOSE
  7. METHYLPREDNISOLONE [Suspect]
     Indication: SARCOIDOSIS
     Dosage: 500 MG, /D

REACTIONS (11)
  - ARTHRALGIA [None]
  - CANDIDIASIS [None]
  - CONVULSION [None]
  - CUSHINGOID [None]
  - DISEASE RECURRENCE [None]
  - HISTOPLASMOSIS DISSEMINATED [None]
  - HYPERTENSION [None]
  - MULTI-ORGAN FAILURE [None]
  - SARCOIDOSIS [None]
  - TRANSPLANT REJECTION [None]
  - TUBULOINTERSTITIAL NEPHRITIS [None]
